FAERS Safety Report 5992984-5 (Version None)
Quarter: 2008Q4

REPORT INFORMATION
  Report Type: 
  Country: None (occurrence: None)
  Receive Date: 20081210
  Receipt Date: 20081125
  Transmission Date: 20090506
  Serious: Yes (Other)
  Sender: FDA-Public Use
  Company Number: 2008PL000269

PATIENT
  Age: 70 Year
  Sex: Male

DRUGS (9)
  1. LABETALOL HYDROCHLORIDE [Suspect]
     Indication: HYPERTENSION
     Dosage: IV
     Route: 042
  2. BEVACIZUMAB (CON.) [Concomitant]
  3. DOCETAXEL (CON.) [Concomitant]
  4. THALIDOMIDE (CON.) [Concomitant]
  5. PREDNISONE (CON.) [Concomitant]
  6. DIURETICS (NOT SPECIFIED) (CON.) [Concomitant]
  7. CALCIUM CHANNEL BLOCKER (NOT SPECIFIED) (CON.) [Concomitant]
  8. HYDRALAZINE (CON.) [Concomitant]
  9. NITRITE (NOT SPECIFIED) (CON.) [Concomitant]

REACTIONS (6)
  - AORTIC DISSECTION [None]
  - BLOOD PRESSURE INCREASED [None]
  - CONTRAST MEDIA REACTION [None]
  - MUSCULOSKELETAL PAIN [None]
  - NEPHROPATHY [None]
  - RENAL TUBULAR NECROSIS [None]
